FAERS Safety Report 24814974 (Version 1)
Quarter: 2025Q1

REPORT INFORMATION
  Report Type: Spontaneous
  Country: AU (occurrence: AU)
  Receive Date: 20250107
  Receipt Date: 20250107
  Transmission Date: 20250409
  Serious: Yes (Hospitalization, Other)
  Sender: VERITY PHARMACEUTICALS INC.
  Company Number: AU-VER-202400003

PATIENT
  Age: 72 Year
  Sex: Male

DRUGS (2)
  1. BACILLUS CALMETTE-GUERIN SUBSTRAIN RUSSIAN BCG-I LIVE ANTIGEN [Suspect]
     Active Substance: BACILLUS CALMETTE-GUERIN SUBSTRAIN RUSSIAN BCG-I LIVE ANTIGEN
     Indication: Bladder cancer stage 0, with cancer in situ
     Route: 043
     Dates: start: 2021
  2. BACILLUS CALMETTE-GUERIN SUBSTRAIN RUSSIAN BCG-I LIVE ANTIGEN [Suspect]
     Active Substance: BACILLUS CALMETTE-GUERIN SUBSTRAIN RUSSIAN BCG-I LIVE ANTIGEN
     Indication: Bladder transitional cell carcinoma
     Route: 043
     Dates: start: 2021

REACTIONS (2)
  - Cystitis [Unknown]
  - Disseminated Bacillus Calmette-Guerin infection [Unknown]
